FAERS Safety Report 15371635 (Version 2)
Quarter: 2018Q3

REPORT INFORMATION
  Report Type: Spontaneous
  Country: GB (occurrence: GB)
  Receive Date: 20180911
  Receipt Date: 20180911
  Transmission Date: 20181010
  Serious: Yes (Hospitalization)
  Sender: FDA-Public Use
  Company Number: PHHY2018GB090233

PATIENT
  Age: 24 Year
  Sex: Female

DRUGS (7)
  1. PROCHLORPERAZINE. [Suspect]
     Active Substance: PROCHLORPERAZINE
     Indication: HYPEREMESIS GRAVIDARUM
     Route: 042
  2. HIDROCORTISON [Suspect]
     Active Substance: HYDROCORTISONE
     Indication: HYPEREMESIS GRAVIDARUM
     Dosage: UNK
     Route: 042
  3. CYCLIZINE [Suspect]
     Active Substance: CYCLIZINE
     Indication: HYPEREMESIS GRAVIDARUM
     Route: 042
  4. METOCLOPRAMIDE HYDROCHLORIDE. [Suspect]
     Active Substance: METOCLOPRAMIDE HYDROCHLORIDE
     Indication: HYPEREMESIS GRAVIDARUM
     Route: 042
  5. MAGNESIUM [Suspect]
     Active Substance: MAGNESIUM
     Indication: PRODUCT USED FOR UNKNOWN INDICATION
     Dosage: UNK UNK, QD
     Route: 065
  6. ONDANSETRON [Suspect]
     Active Substance: ONDANSETRON
     Indication: HYPEREMESIS GRAVIDARUM
     Dosage: UNK
     Route: 058
  7. MIRTAZAPINE. [Suspect]
     Active Substance: MIRTAZAPINE
     Indication: HYPEREMESIS GRAVIDARUM
     Dosage: 30 MG, QD
     Route: 048

REACTIONS (3)
  - Exposure during pregnancy [Unknown]
  - Off label use [Unknown]
  - Drug ineffective [Unknown]
